FAERS Safety Report 21211198 (Version 1)
Quarter: 2022Q3

REPORT INFORMATION
  Report Type: Report from Study
  Country: US (occurrence: US)
  Receive Date: 20220815
  Receipt Date: 20220815
  Transmission Date: 20221026
  Serious: Yes (Other)
  Sender: FDA-Public Use
  Company Number: US-BRISTOL-MYERS SQUIBB COMPANY-2022-086825

PATIENT
  Age: 84 Year
  Sex: Male
  Weight: 77.11 kg

DRUGS (2)
  1. REVLIMID [Suspect]
     Active Substance: LENALIDOMIDE
     Indication: Non-Hodgkin^s lymphoma
     Dosage: 21 OUT OF 28DAYS
     Route: 048
     Dates: start: 20220725
  2. ASPIRIN TEVA [Concomitant]
     Indication: Product used for unknown indication
     Route: 065

REACTIONS (5)
  - Hypotension [Unknown]
  - Fatigue [Unknown]
  - Muscle spasms [Unknown]
  - Ear irrigation [Unknown]
  - Dyspnoea [Unknown]
